FAERS Safety Report 4733192-5 (Version None)
Quarter: 2005Q3

REPORT INFORMATION
  Report Type: 
  Country: None (occurrence: None)
  Receive Date: 20050725
  Receipt Date: 20040830
  Transmission Date: 20060218
  Serious: Yes (Other)
  Sender: FDA-Public Use
  Company Number: USA-2004-0016694

PATIENT
  Sex: Male
  Weight: 106.6 kg

DRUGS (4)
  1. MORPHINE SULFATE [Suspect]
  2. HYDROCODONE BITARTRATE [Suspect]
  3. OXYCONTIN [Concomitant]
  4. NEURONTIN [Concomitant]

REACTIONS (1)
  - POLYSUBSTANCE ABUSE [None]
